FAERS Safety Report 14941743 (Version 1)
Quarter: 2018Q2

REPORT INFORMATION
  Report Type: Spontaneous
  Country: US (occurrence: US)
  Receive Date: 20180527
  Receipt Date: 20180527
  Transmission Date: 20180711
  Serious: No
  Sender: FDA-Public Use
  Company Number: US-JNJFOC-20180518678

PATIENT
  Sex: Female
  Weight: 78.02 kg

DRUGS (2)
  1. STELARA [Suspect]
     Active Substance: USTEKINUMAB
     Indication: PSORIASIS
     Dosage: ON WEEK 0, WEEK 4 AND EVERY 12 WEEKS AS DIRECTED
     Route: 058
  2. BIOTIN [Concomitant]
     Active Substance: BIOTIN
     Route: 065

REACTIONS (2)
  - Dizziness [Unknown]
  - Diarrhoea [Unknown]
